FAERS Safety Report 10172937 (Version 1)
Quarter: 2014Q2

REPORT INFORMATION
  Report Type: Spontaneous
  Country: US (occurrence: None)
  Receive Date: 20140513
  Receipt Date: 20140513
  Transmission Date: 20141212
  Serious: Yes (Death)
  Sender: FDA-Public Use
  Company Number: BTG00122

PATIENT
  Age: 73 Year
  Sex: Male

DRUGS (2)
  1. VORAXAZE (GLUCARPIDASE) POWDER FOR SOLUTION [Suspect]
     Indication: TOXICITY TO VARIOUS AGENTS
     Dosage: SINGLE
  2. METHOTREXATE [Suspect]
     Indication: PRODUCT USED FOR UNKNOWN INDICATION

REACTIONS (1)
  - Toxicity to various agents [None]
